FAERS Safety Report 10206618 (Version 7)
Quarter: 2018Q3

REPORT INFORMATION
  Report Type: Spontaneous
  Country: US (occurrence: US)
  Receive Date: 20140530
  Receipt Date: 20180713
  Transmission Date: 20181010
  Serious: Yes (Hospitalization, Other)
  Sender: FDA-Public Use
  Company Number: US-GLAXOSMITHKLINE-A1068125A

PATIENT
  Sex: Female

DRUGS (11)
  1. FLOLAN [Suspect]
     Active Substance: EPOPROSTENOL SODIUM
     Indication: PULMONARY ARTERIAL HYPERTENSION
  2. FLOLAN [Suspect]
     Active Substance: EPOPROSTENOL SODIUM
     Dosage: UNK
     Dates: start: 19990709
  3. FLOLAN [Suspect]
     Active Substance: EPOPROSTENOL SODIUM
     Dosage: 52 NG/KG/MIN, CO
     Route: 042
  4. FLOLAN [Suspect]
     Active Substance: EPOPROSTENOL SODIUM
     Dosage: 51 NG/KG/MIN
     Route: 042
  5. FLOLAN [Suspect]
     Active Substance: EPOPROSTENOL SODIUM
     Dosage: UNK
  6. FLOLAN [Suspect]
     Active Substance: EPOPROSTENOL SODIUM
     Indication: PULMONARY ARTERIAL HYPERTENSION
     Dosage: 53 NG/KG/MIN AT 60,000 NG/ML CONCENTRATION  1.5 VIAL STRENGTH, 74 ML/DAY
     Route: 042
     Dates: start: 19990709
  7. FLOLAN [Suspect]
     Active Substance: EPOPROSTENOL SODIUM
     Dosage: 52 NG/KG/MIN, CO
     Route: 042
  8. FLOLAN DILUENT PH 12 [Suspect]
     Active Substance: GLYCINE\MANNITOL\SODIUM CHLORIDE
     Indication: PULMONARY ARTERIAL HYPERTENSION
     Dosage: UNK
  9. FLOLAN [Suspect]
     Active Substance: EPOPROSTENOL SODIUM
     Dosage: 52 DF, CO
  10. FLOLAN [Suspect]
     Active Substance: EPOPROSTENOL SODIUM
     Dosage: 54.1 DF, CO
  11. LETAIRIS [Concomitant]
     Active Substance: AMBRISENTAN

REACTIONS (10)
  - Pain in extremity [Unknown]
  - Blood test abnormal [Unknown]
  - Internal haemorrhage [Not Recovered/Not Resolved]
  - Dehydration [Unknown]
  - Anaemia [Unknown]
  - Emergency care [Unknown]
  - Nasopharyngitis [Unknown]
  - Weight decreased [Unknown]
  - Headache [Unknown]
  - Haemoglobin decreased [Not Recovered/Not Resolved]
